FAERS Safety Report 25612494 (Version 1)
Quarter: 2025Q3

REPORT INFORMATION
  Report Type: Spontaneous
  Country: CO (occurrence: CO)
  Receive Date: 20250728
  Receipt Date: 20250728
  Transmission Date: 20251021
  Serious: Yes (Other)
  Sender: REGENERON
  Company Number: CO-BAYER-2025A099400

PATIENT

DRUGS (1)
  1. EYLEA [Suspect]
     Active Substance: AFLIBERCEPT
     Indication: Diabetic retinal oedema

REACTIONS (4)
  - Retinal vascular occlusion [Unknown]
  - Retinal ischaemia [Unknown]
  - Sudden visual loss [Unknown]
  - Blindness [Unknown]
